FAERS Safety Report 9490198 (Version 1)
Quarter: 2013Q3

REPORT INFORMATION
  Report Type: Spontaneous
  Country: US (occurrence: US)
  Receive Date: 20130830
  Receipt Date: 20130830
  Transmission Date: 20140515
  Serious: Yes (Hospitalization)
  Sender: FDA-Public Use
  Company Number: US-BIOGENIDEC-2013BI082380

PATIENT
  Sex: Male
  Weight: 85 kg

DRUGS (10)
  1. AVONEX [Suspect]
     Indication: MULTIPLE SCLEROSIS
     Route: 030
     Dates: start: 20021101
  2. LYRICA [Concomitant]
  3. OXYCODONE HCL [Concomitant]
  4. OXYCONTIN [Concomitant]
  5. TIZANIDINE HCL [Concomitant]
  6. TRAZODONE HCL [Concomitant]
  7. AMPYRA [Concomitant]
  8. NORTRIPTYLINE HCL [Concomitant]
  9. ZOLOFT [Concomitant]
  10. AUBAGIO [Concomitant]

REACTIONS (4)
  - Drug withdrawal convulsions [Unknown]
  - Blood testosterone decreased [Unknown]
  - Drug ineffective [Unknown]
  - Depression [Unknown]
